FAERS Safety Report 7981712-X (Version None)
Quarter: 2011Q4

REPORT INFORMATION
  Report Type: 
  Country: None (occurrence: None)
  Receive Date: 20111213
  Receipt Date: 20111130
  Transmission Date: 20120403
  Serious: Yes (Hospitalization)
  Sender: FDA-Public Use
  Company Number: 2011AL000095

PATIENT
  Age: 58 Year
  Sex: Female
  Weight: 88.8143 kg

DRUGS (14)
  1. ATIVAN [Concomitant]
  2. FOLOTYN [Suspect]
     Indication: OVARIAN CANCER
     Dosage: 45 MG/M 2; QOW, IV
     Route: 042
     Dates: start: 20111125
  3. HYDROCHLOROTHIAZIDE [Concomitant]
  4. ONDANSETRON [Concomitant]
  5. VITAMIN D [Concomitant]
  6. GLUCOSAMINE CHONDROITIN [Concomitant]
  7. VITAMIN D [Concomitant]
  8. OMEPRAZOLE [Concomitant]
  9. PROCHLORPERAZINE [Concomitant]
  10. POTASSIUIM CHLORIDE [Concomitant]
  11. CALCIUM [Concomitant]
  12. LISINOPRIL [Concomitant]
  13. CARBOPLATIN [Suspect]
     Indication: OVARIAN CANCER
     Dosage: QM, IV
     Route: 042
     Dates: start: 20111125
  14. DEXAMETHASONE [Concomitant]

REACTIONS (6)
  - PLATELET COUNT DECREASED [None]
  - DYSPEPSIA [None]
  - HYPERHIDROSIS [None]
  - CHEST PAIN [None]
  - PRESYNCOPE [None]
  - DIZZINESS [None]
